FAERS Safety Report 24426248 (Version 1)
Quarter: 2024Q4

REPORT INFORMATION
  Report Type: Report from Study
  Country: ES (occurrence: ES)
  Receive Date: 20241011
  Receipt Date: 20241011
  Transmission Date: 20250114
  Serious: Yes (Life-Threatening, Disabling)
  Sender: GRIFOLS
  Company Number: ES-IGSA-BIG0030932

PATIENT
  Age: 74 Year
  Sex: Male
  Weight: 58 kg

DRUGS (2)
  1. .ALPHA.1-PROTEINASE INHIBITOR HUMAN [Suspect]
     Active Substance: .ALPHA.1-PROTEINASE INHIBITOR HUMAN
     Indication: Chronic obstructive pulmonary disease
     Dosage: 7000 MILLIGRAM, TOTAL
     Route: 042
     Dates: start: 20240917, end: 20240917
  2. .ALPHA.1-PROTEINASE INHIBITOR HUMAN [Suspect]
     Active Substance: .ALPHA.1-PROTEINASE INHIBITOR HUMAN
     Dosage: 4000 MILLIGRAM
     Route: 042
     Dates: start: 20241001, end: 20241001

REACTIONS (8)
  - Dyspnoea [Recovered/Resolved]
  - Asthenopia [Recovered/Resolved]
  - Bronchospasm [Not Recovered/Not Resolved]
  - Headache [Not Recovered/Not Resolved]
  - Back pain [Not Recovered/Not Resolved]
  - Tachycardia [Not Recovered/Not Resolved]
  - Fatigue [Not Recovered/Not Resolved]
  - Somnolence [Not Recovered/Not Resolved]

NARRATIVE: CASE EVENT DATE: 20240917
